FAERS Safety Report 7325694-2 (Version None)
Quarter: 2011Q1

REPORT INFORMATION
  Report Type: 
  Country: None (occurrence: None)
  Receive Date: 20110302
  Receipt Date: 20110222
  Transmission Date: 20110831
  Serious: Yes (Death)
  Sender: FDA-Public Use
  Company Number: TZ-SANOFI-AVENTIS-2011SA011320

PATIENT
  Sex: Male
  Weight: 45 kg

DRUGS (8)
  1. RIFAMPICIN [Suspect]
     Indication: PULMONARY TUBERCULOSIS
     Dates: start: 20110121
  2. CEFTRIAXONE [Concomitant]
  3. MOXIFLOXACIN [Concomitant]
     Indication: PULMONARY TUBERCULOSIS
     Dates: start: 20110121
  4. HYDROCORTISONE [Concomitant]
  5. METRONIDAZOLE [Concomitant]
  6. ISONIAZID [Suspect]
     Indication: PULMONARY TUBERCULOSIS
     Dates: start: 20110121
  7. ETHAMBUTOL HYDROCHLORIDE [Suspect]
     Indication: PULMONARY TUBERCULOSIS
     Dates: start: 20110121
  8. PYRAZINAMIDE [Suspect]
     Indication: PULMONARY TUBERCULOSIS
     Dates: start: 20110121

REACTIONS (3)
  - DYSPNOEA [None]
  - NAUSEA [None]
  - DEATH [None]
